FAERS Safety Report 19932591 (Version 1)
Quarter: 2021Q4

REPORT INFORMATION
  Report Type: Spontaneous
  Country: US (occurrence: US)
  Receive Date: 20211006
  Receipt Date: 20211006
  Transmission Date: 20220303
  Serious: No
  Sender: FDA-Public Use
  Company Number: None

PATIENT
  Age: 66 Year
  Sex: Male

DRUGS (2)
  1. AMBRISENTAN [Suspect]
     Active Substance: AMBRISENTAN
     Indication: Pulmonary arterial hypertension
     Route: 048
     Dates: start: 20210806, end: 20210920
  2. TADALAFIL [Suspect]
     Active Substance: TADALAFIL

REACTIONS (1)
  - Hypotension [None]

NARRATIVE: CASE EVENT DATE: 20210908
